FAERS Safety Report 8082772-0 (Version None)
Quarter: 2012Q1

REPORT INFORMATION
  Report Type: 
  Country: None (occurrence: None)
  Receive Date: 20120127
  Receipt Date: 20110210
  Transmission Date: 20120608
  Serious: No
  Sender: FDA-Public Use
  Company Number: US-ABBOTT-11P-163-0704000-00

PATIENT
  Sex: Male
  Weight: 99.88 kg

DRUGS (11)
  1. HUMIRA [Suspect]
     Route: 058
  2. ASCORBIC ACID [Concomitant]
     Indication: PRODUCT USED FOR UNKNOWN INDICATION
  3. ASPIRIN [Concomitant]
     Indication: PRODUCT USED FOR UNKNOWN INDICATION
  4. XALATAN [Concomitant]
     Indication: GLAUCOMA
     Dosage: 1 OU DAILY
     Route: 047
  5. FOLIC ACID [Concomitant]
     Indication: VITAMIN SUPPLEMENTATION
     Route: 048
  6. VITAMIN A [Concomitant]
     Indication: PRODUCT USED FOR UNKNOWN INDICATION
  7. MULTI-VITAMIN [Concomitant]
     Indication: PRODUCT USED FOR UNKNOWN INDICATION
  8. HUMIRA [Suspect]
     Indication: PSORIASIS
     Route: 058
     Dates: start: 20110130
  9. ALPHAGAN [Concomitant]
     Indication: GLAUCOMA
     Route: 047
  10. COSOPT [Concomitant]
     Indication: GLAUCOMA
     Dosage: 2 IN ONE DAY
     Route: 047
  11. VITAMIN D [Concomitant]
     Indication: PRODUCT USED FOR UNKNOWN INDICATION

REACTIONS (3)
  - INTRAOCULAR PRESSURE INCREASED [None]
  - PSORIASIS [None]
  - SINUSITIS [None]
